FAERS Safety Report 18324114 (Version 1)
Quarter: 2020Q3

REPORT INFORMATION
  Report Type: Spontaneous
  Country: US (occurrence: US)
  Receive Date: 20200929
  Receipt Date: 20200929
  Transmission Date: 20201103
  Serious: Yes (Death)
  Sender: FDA-Public Use
  Company Number: None

PATIENT
  Age: 19 Year
  Sex: Female
  Weight: 49.5 kg

DRUGS (1)
  1. NEULASTA [Suspect]
     Active Substance: PEGFILGRASTIM
     Indication: SARCOMA
     Dosage: ?          OTHER FREQUENCY:TWO TIMES;?
     Route: 030

REACTIONS (4)
  - Spleen disorder [None]
  - Respiratory distress [None]
  - Adverse event [None]
  - Lung disorder [None]

NARRATIVE: CASE EVENT DATE: 20180801
